FAERS Safety Report 9291059 (Version 1)
Quarter: 2013Q2

REPORT INFORMATION
  Report Type: Spontaneous
  Country: SE (occurrence: SE)
  Receive Date: 20130515
  Receipt Date: 20130515
  Transmission Date: 20140414
  Serious: Yes (Hospitalization)
  Sender: FDA-Public Use
  Company Number: CHPA2013SE007861

PATIENT
  Age: 6 Year
  Sex: Female

DRUGS (3)
  1. TAVEGYL [Suspect]
     Dosage: UNK, UNK
     Route: 065
     Dates: start: 20091116
  2. PANDEMRIX [Concomitant]
     Dosage: UNK, UNK
  3. COCILLANA-ETYFIN [Concomitant]
     Dosage: UNK, UNK
     Dates: start: 20091116

REACTIONS (1)
  - Urticaria [Recovering/Resolving]
